FAERS Safety Report 9040988 (Version 1)
Quarter: 2013Q1

REPORT INFORMATION
  Report Type: Spontaneous
  Country: US (occurrence: None)
  Receive Date: 20130123
  Receipt Date: 20130123
  Transmission Date: 20140127
  Serious: Yes (Other)
  Sender: FDA-Public Use
  Company Number: None

PATIENT
  Age: 77 Year
  Sex: Female
  Weight: 52.16 kg

DRUGS (1)
  1. ZETIA 10 MG TAB MERCK/SCHE [Suspect]
     Indication: BLOOD CHOLESTEROL INCREASED
     Dosage: ZETIA 10 MG  1 DAILY
     Dates: start: 20121113, end: 20121214

REACTIONS (4)
  - Vascular rupture [None]
  - Eye haemorrhage [None]
  - Memory impairment [None]
  - Activities of daily living impaired [None]
